FAERS Safety Report 4383176-4 (Version None)
Quarter: 2004Q2

REPORT INFORMATION
  Report Type: 
  Country: None (occurrence: None)
  Receive Date: 20040622
  Receipt Date: 20040622
  Transmission Date: 20050107
  Serious: No
  Sender: FDA-Public Use
  Company Number: None

PATIENT
  Age: 12 Year
  Sex: Male
  Weight: 58.9676 kg

DRUGS (1)
  1. FENTANYL [Suspect]
     Dosage: 25 MCG TRANSDERMAL SYSTEM
     Route: 062

REACTIONS (1)
  - DEATH [None]
